FAERS Safety Report 6919146-9 (Version None)
Quarter: 2010Q3

REPORT INFORMATION
  Report Type: 
  Country: None (occurrence: None)
  Receive Date: 20100811
  Receipt Date: 20100805
  Transmission Date: 20110219
  Serious: Yes (Hospitalization, Other)
  Sender: FDA-Public Use
  Company Number: GB-ROCHE-717410

PATIENT
  Sex: Female

DRUGS (1)
  1. BONIVA [Suspect]
     Indication: OSTEOPOROSIS
     Route: 065
     Dates: start: 20090801, end: 20100201

REACTIONS (5)
  - DENTAL CARIES [None]
  - TOOTH EXTRACTION [None]
  - TOOTH IMPACTED [None]
  - TOOTH INFECTION [None]
  - TOOTHACHE [None]
